FAERS Safety Report 5115316-3 (Version None)
Quarter: 2006Q3

REPORT INFORMATION
  Report Type: 
  Country: None (occurrence: None)
  Receive Date: 20060920
  Receipt Date: 20060914
  Transmission Date: 20061208
  Serious: Yes (Other)
  Sender: FDA-Public Use
  Company Number: HQWYE109621DEC05

PATIENT
  Age: 16 Year
  Sex: Female

DRUGS (1)
  1. CLIMAREST PLUS (CONJUGATED ESTROGENS/MEDROXYPROGESTERONE ACETATE, TABL [Suspect]
     Indication: BODY HEIGHT ABOVE NORMAL
     Dosage: 7.5MG CONJUGATED ESTROGENS/5MG MEDROGESTON 11 DAYS PER MONTH ORAL
     Route: 048

REACTIONS (8)
  - ARTHRALGIA [None]
  - BLOOD CHOLESTEROL INCREASED [None]
  - COAGULATION FACTOR VIII LEVEL INCREASED [None]
  - ILIAC ARTERY THROMBOSIS [None]
  - PULMONARY ARTERY THROMBOSIS [None]
  - VASCULAR CALCIFICATION [None]
  - VENA CAVA THROMBOSIS [None]
  - WEIGHT INCREASED [None]
